FAERS Safety Report 26098111 (Version 2)
Quarter: 2025Q4

REPORT INFORMATION
  Report Type: Spontaneous
  Country: US (occurrence: US)
  Receive Date: 20251127
  Receipt Date: 20251209
  Transmission Date: 20260118
  Serious: Yes (Other)
  Sender: NOVARTIS
  Company Number: US-002147023-NVSC2025US181002

PATIENT
  Sex: Female

DRUGS (2)
  1. MEKINIST [Suspect]
     Active Substance: TRAMETINIB DIMETHYL SULFOXIDE
     Indication: Acute myeloid leukaemia
     Dosage: 1 MG, QD
     Route: 048
     Dates: start: 202509
  2. MEKINIST [Suspect]
     Active Substance: TRAMETINIB DIMETHYL SULFOXIDE
     Indication: Myelodysplastic syndrome

REACTIONS (4)
  - Internal haemorrhage [Unknown]
  - Rash [Unknown]
  - Pyrexia [Unknown]
  - Off label use [Unknown]
